FAERS Safety Report 6577201-X (Version None)
Quarter: 2010Q1

REPORT INFORMATION
  Report Type: 
  Country: None (occurrence: None)
  Receive Date: 20100210
  Receipt Date: 20100202
  Transmission Date: 20100710
  Serious: Yes (Other)
  Sender: FDA-Public Use
  Company Number: PHHY2009FR48984

PATIENT
  Sex: Female
  Weight: 94 kg

DRUGS (3)
  1. RASILEZ [Suspect]
     Indication: HYPERTENSION
     Dosage: 300 MG, UNK
     Dates: start: 20091022, end: 20091029
  2. TRANDATE [Concomitant]
     Dosage: 1 DF, DAILY
     Dates: start: 20050101
  3. ZANIDIP [Concomitant]
     Dosage: 1DF, DAILY
     Dates: start: 20050101

REACTIONS (3)
  - ANAPHYLACTIC REACTION [None]
  - ANGIOEDEMA [None]
  - BALANCE DISORDER [None]
